FAERS Safety Report 6807769-7 (Version None)
Quarter: 2010Q2

REPORT INFORMATION
  Report Type: 
  Country: None (occurrence: None)
  Receive Date: 20100629
  Receipt Date: 20081128
  Transmission Date: 20101027
  Serious: No
  Sender: FDA-Public Use
  Company Number: US-PFIZER INC-2008100470

PATIENT
  Sex: Female

DRUGS (5)
  1. MEDROL [Suspect]
     Dates: start: 20081127
  2. LAMICTAL [Concomitant]
  3. KLONOPIN [Concomitant]
  4. EFFEXOR [Concomitant]
  5. AMBIEN [Concomitant]

REACTIONS (2)
  - BLOOD PRESSURE INCREASED [None]
  - RASH [None]
